FAERS Safety Report 15961319 (Version 1)
Quarter: 2019Q1

REPORT INFORMATION
  Report Type: Spontaneous
  Country: US (occurrence: US)
  Receive Date: 20190214
  Receipt Date: 20190214
  Transmission Date: 20190417
  Serious: No
  Sender: FDA-Public Use
  Company Number: US-ASTRAZENECA-2019SE12950

PATIENT

DRUGS (2)
  1. TAGRISSO [Suspect]
     Active Substance: OSIMERTINIB
     Route: 048
     Dates: start: 2018
  2. AFATINIB [Concomitant]
     Active Substance: AFATINIB
     Indication: LUNG CANCER METASTATIC

REACTIONS (2)
  - Skin lesion [Unknown]
  - Pain [Unknown]
